FAERS Safety Report 7779793-1 (Version None)
Quarter: 2011Q3

REPORT INFORMATION
  Report Type: 
  Country: None (occurrence: None)
  Receive Date: 20110927
  Receipt Date: 20110915
  Transmission Date: 20111222
  Serious: Yes (Hospitalization, Other)
  Sender: FDA-Public Use
  Company Number: SE-JNJFOC-20110906911

PATIENT
  Age: 19 Year
  Sex: Female

DRUGS (4)
  1. REMICADE [Suspect]
     Indication: POLYMYALGIA RHEUMATICA
     Dosage: 61 ML ONCE
     Route: 042
     Dates: start: 20110527, end: 20110527
  2. METHOTREXATE [Concomitant]
     Route: 048
  3. MYTELASE [Concomitant]
     Route: 048
  4. REMICADE [Suspect]
     Dosage: SECOND INFUSION
     Route: 042
     Dates: start: 20110101

REACTIONS (11)
  - HEADACHE [None]
  - DYSKINESIA [None]
  - DIZZINESS [None]
  - SWELLING FACE [None]
  - ERYTHEMA [None]
  - HYPERSENSITIVITY [None]
  - NASAL CONGESTION [None]
  - FEELING HOT [None]
  - INFUSION RELATED REACTION [None]
  - PAIN IN JAW [None]
  - DYSPNOEA [None]
